FAERS Safety Report 22632342 (Version 5)
Quarter: 2023Q4

REPORT INFORMATION
  Report Type: Report from Study
  Country: CN (occurrence: CN)
  Receive Date: 20230623
  Receipt Date: 20231227
  Transmission Date: 20240110
  Serious: Yes (Hospitalization, Other)
  Sender: FDA-Public Use
  Company Number: CN-002147023-NVSC2022CN248500

PATIENT
  Age: 70 Year
  Sex: Female
  Weight: 51.6 kg

DRUGS (28)
  1. COSENTYX [Suspect]
     Active Substance: SECUKINUMAB
     Indication: Psoriasis
     Dosage: 300 MG, QW
     Route: 058
     Dates: start: 20220928, end: 20221027
  2. COSENTYX [Suspect]
     Active Substance: SECUKINUMAB
     Indication: Psoriatic arthropathy
  3. EBASTINE [Concomitant]
     Active Substance: EBASTINE
     Indication: Antiallergic therapy
     Dosage: 10 MG
     Route: 065
     Dates: start: 20221102, end: 20221111
  4. LORATADINE [Concomitant]
     Active Substance: LORATADINE
     Indication: Antiallergic therapy
     Dosage: 10 MG
     Route: 065
     Dates: start: 20221102, end: 20221111
  5. IBUPROFEN [Concomitant]
     Active Substance: IBUPROFEN
     Indication: Pyrexia
     Dosage: 5 ML (SUSPENSION DROPS)
     Route: 065
     Dates: start: 20221102, end: 20221103
  6. AMOXICILLIN AND CLAVULANATE POTASSIUM [Concomitant]
     Active Substance: AMOXICILLIN\CLAVULANATE POTASSIUM
     Indication: Infection
     Dosage: 0.4 G
     Route: 065
     Dates: start: 20221103, end: 20221108
  7. TEPRENONE [Concomitant]
     Active Substance: TEPRENONE
     Indication: Gastrointestinal disorder
     Dosage: 50 MG
     Route: 065
     Dates: start: 20221103, end: 20221121
  8. LOXOPROFEN SODIUM [Concomitant]
     Active Substance: LOXOPROFEN SODIUM
     Indication: Pyrexia
     Dosage: 1 DOSAGE FORM
     Route: 065
     Dates: start: 20221103, end: 20221121
  9. OSELTAMIVIR PHOSPHATE [Concomitant]
     Active Substance: OSELTAMIVIR PHOSPHATE
     Indication: Infection
     Dosage: 75 MG
     Route: 065
     Dates: start: 20221103, end: 20221121
  10. DEXAMETHASONE SODIUM PHOSPHATE [Concomitant]
     Active Substance: DEXAMETHASONE PHOSPHATE\DEXAMETHASONE SODIUM PHOSPHATE
     Indication: Antiallergic therapy
     Dosage: 5 MG
     Route: 065
     Dates: start: 20221105, end: 20221106
  11. DEXAMETHASONE SODIUM PHOSPHATE [Concomitant]
     Active Substance: DEXAMETHASONE PHOSPHATE\DEXAMETHASONE SODIUM PHOSPHATE
     Dosage: 5 MG
     Route: 065
     Dates: start: 20221106, end: 20221111
  12. SODIUM CHLORIDE [Concomitant]
     Active Substance: SODIUM CHLORIDE
     Indication: Antiinflammatory therapy
     Dosage: 100 ML
     Route: 065
     Dates: start: 20221107, end: 20221108
  13. SODIUM CHLORIDE [Concomitant]
     Active Substance: SODIUM CHLORIDE
     Indication: Infection
     Dosage: 250 ML
     Route: 065
     Dates: start: 20221108
  14. SODIUM CHLORIDE [Concomitant]
     Active Substance: SODIUM CHLORIDE
     Indication: Asthenia
     Dosage: 100 ML
     Route: 065
     Dates: start: 20221108, end: 20221110
  15. SODIUM CHLORIDE [Concomitant]
     Active Substance: SODIUM CHLORIDE
     Dosage: 100 ML
     Route: 065
     Dates: start: 20221110, end: 20221111
  16. SODIUM CHLORIDE [Concomitant]
     Active Substance: SODIUM CHLORIDE
     Dosage: 0.4 G
     Route: 065
     Dates: start: 20221112, end: 20221122
  17. METHYLPREDNISOLONE SODIUM SUCCINATE [Concomitant]
     Active Substance: METHYLPREDNISOLONE SODIUM SUCCINATE
     Indication: Antiinflammatory therapy
     Dosage: 40 MG
     Route: 065
     Dates: start: 20221111, end: 20221121
  18. HYDROCORTISONE [Concomitant]
     Active Substance: HYDROCORTISONE
     Indication: Injection
     Dosage: 100 MG
     Route: 065
     Dates: start: 20221108
  19. DICLOFENAC SODIUM [Concomitant]
     Active Substance: DICLOFENAC\DICLOFENAC SODIUM
     Indication: Pyrexia
     Dosage: 0.5 DOSAGE FORM
     Route: 065
     Dates: start: 20221108
  20. DICLOFENAC SODIUM [Concomitant]
     Active Substance: DICLOFENAC\DICLOFENAC SODIUM
     Indication: Antiinflammatory therapy
     Dosage: 0.5 DOSAGE FORM
     Route: 065
     Dates: start: 20221111
  21. DEXTROSE [Concomitant]
     Active Substance: DEXTROSE\DEXTROSE MONOHYDRATE
     Indication: Asthenia
     Dosage: UNK
     Route: 065
     Dates: start: 20221108
  22. CEFOPERAZONE SODIUM\SULBACTAM SODIUM [Concomitant]
     Active Substance: CEFOPERAZONE SODIUM\SULBACTAM SODIUM
     Indication: Infection
     Dosage: 3.0 G
     Route: 065
     Dates: start: 20221108, end: 20221111
  23. METHYLPREDNISOLONE SODIUM SUCCINATE [Concomitant]
     Active Substance: METHYLPREDNISOLONE SODIUM SUCCINATE
     Indication: Antiinflammatory therapy
     Dosage: 20 MG
     Route: 065
     Dates: start: 20221110, end: 20221111
  24. ALBUMIN HUMAN [Concomitant]
     Active Substance: ALBUMIN HUMAN
     Indication: Supplementation therapy
     Dosage: 10 G
     Route: 065
     Dates: start: 20221110
  25. FUROSEMIDE [Concomitant]
     Active Substance: FUROSEMIDE
     Indication: Diuretic therapy
     Dosage: 20 MG
     Route: 065
     Dates: start: 20221110
  26. DOMPERIDONE [Concomitant]
     Active Substance: DOMPERIDONE
     Indication: Vomiting
     Dosage: 10 MG
     Route: 065
     Dates: start: 20221111, end: 20221121
  27. AVELOX [Concomitant]
     Active Substance: MOXIFLOXACIN HYDROCHLORIDE
     Indication: Infection
     Dosage: 0.4 G
     Route: 065
     Dates: start: 20221112, end: 20221121
  28. SACCHAROMYCES CEREVISIAE [Concomitant]
     Active Substance: SACCHAROMYCES CEREVISIAE
     Indication: Poor peripheral circulation
     Dosage: 0.25 MG (SACHETS)
     Route: 065
     Dates: start: 20221116, end: 20221121

REACTIONS (17)
  - Pneumonia [Recovering/Resolving]
  - Hepatic failure [Recovering/Resolving]
  - Psoriatic arthropathy [Not Recovered/Not Resolved]
  - Joint swelling [Recovering/Resolving]
  - Arthralgia [Recovering/Resolving]
  - Pleural effusion [Recovering/Resolving]
  - Rheumatoid arthritis [Recovering/Resolving]
  - Lung disorder [Recovering/Resolving]
  - Rash [Recovering/Resolving]
  - Skin swelling [Recovering/Resolving]
  - Pain [Recovering/Resolving]
  - Pyrexia [Recovering/Resolving]
  - Eosinophil count increased [Recovering/Resolving]
  - Thrombocytosis [Recovering/Resolving]
  - Psoriasis [Recovering/Resolving]
  - Hepatic function abnormal [Recovering/Resolving]
  - Pulmonary pneumatocele [Recovering/Resolving]

NARRATIVE: CASE EVENT DATE: 20221018
